FAERS Safety Report 17222247 (Version 1)
Quarter: 2020Q1

REPORT INFORMATION
  Report Type: Report from Study
  Country: CA (occurrence: CA)
  Receive Date: 20200101
  Receipt Date: 20200101
  Transmission Date: 20200409
  Serious: Yes (Other)
  Sender: FDA-Public Use
  Company Number: CA-SAMSUNG BIOEPIS-SB-2019-40055

PATIENT
  Age: 89 Year
  Sex: Male

DRUGS (1)
  1. BRENZYS [Suspect]
     Active Substance: ETANERCEPT
     Indication: RHEUMATOID ARTHRITIS
     Route: 058
     Dates: start: 20190111

REACTIONS (2)
  - Urinary tract infection [Unknown]
  - Immunosuppression [Unknown]

NARRATIVE: CASE EVENT DATE: 201904
